FAERS Safety Report 16015402 (Version 1)
Quarter: 2019Q1

REPORT INFORMATION
  Report Type: Spontaneous
  Country: FR (occurrence: FR)
  Receive Date: 20190228
  Receipt Date: 20190228
  Transmission Date: 20190418
  Serious: Yes (Death, Hospitalization)
  Sender: FDA-Public Use
  Company Number: FR-SUN PHARMACEUTICAL INDUSTRIES LTD-2019RR-200333

PATIENT
  Age: 52 Year
  Sex: Male
  Weight: 97.4 kg

DRUGS (1)
  1. PARACETAMOL [Suspect]
     Active Substance: ACETAMINOPHEN
     Indication: TOOTHACHE
     Dosage: 32 GRAM
     Route: 048
     Dates: start: 20180312, end: 20180314

REACTIONS (2)
  - Confusional state [Not Recovered/Not Resolved]
  - Hepatitis fulminant [Fatal]

NARRATIVE: CASE EVENT DATE: 20180315
